FAERS Safety Report 15121398 (Version 20)
Quarter: 2021Q4

REPORT INFORMATION
  Report Type: Spontaneous
  Country: US (occurrence: US)
  Receive Date: 20180709
  Receipt Date: 20211123
  Transmission Date: 20220303
  Serious: Yes (Other)
  Sender: FDA-Public Use
  Company Number: US-PFIZER INC-2018274057

PATIENT
  Age: 60 Year
  Sex: Female
  Weight: 63 kg

DRUGS (8)
  1. LYRICA [Suspect]
     Active Substance: PREGABALIN
     Indication: Discomfort
     Dosage: 300 MG, DAILY (4 CAPSULES)/TAKE ONE ONE TABLET BY MOUTH IN THE AM AND THREE AT BEDTIME)
     Route: 048
     Dates: start: 2009, end: 201807
  2. LYRICA [Suspect]
     Active Substance: PREGABALIN
     Indication: Hemiparesis
     Dosage: 75 MG, 3X/DAY
     Route: 048
     Dates: start: 20090323
  3. LYRICA [Suspect]
     Active Substance: PREGABALIN
     Indication: Peroneal nerve palsy
     Dosage: 75 MG, 2X/DAY
     Route: 048
  4. LYRICA [Suspect]
     Active Substance: PREGABALIN
     Indication: Neuralgia
     Dosage: 100 MG
  5. LYRICA [Suspect]
     Active Substance: PREGABALIN
     Indication: Aneurysm
     Dosage: 75 MG, 4X/DAY
  6. LYRICA [Suspect]
     Active Substance: PREGABALIN
     Indication: Fibromyalgia
     Dosage: 4 DF, DAILY (ONE TABLET IN THE AM AND THREE AT BEDTIME)
  7. LYRICA [Suspect]
     Active Substance: PREGABALIN
     Indication: Anxiety
  8. LYRICA [Suspect]
     Active Substance: PREGABALIN
     Indication: Intracranial aneurysm

REACTIONS (21)
  - Parkinson^s disease [Unknown]
  - Off label use [Unknown]
  - Product use issue [Unknown]
  - Pain [Unknown]
  - Balance disorder [Unknown]
  - Fall [Unknown]
  - Asthenia [Unknown]
  - Confusional state [Unknown]
  - Illness [Unknown]
  - Fear of death [Unknown]
  - Memory impairment [Not Recovered/Not Resolved]
  - Movement disorder [Unknown]
  - Feeling abnormal [Recovered/Resolved]
  - Cognitive disorder [Recovered/Resolved]
  - Aphasia [Recovered/Resolved]
  - Therapeutic response unexpected [Unknown]
  - Withdrawal syndrome [Unknown]
  - Depression [Unknown]
  - Pain in extremity [Unknown]
  - Hyperventilation [Unknown]
  - Condition aggravated [Unknown]

NARRATIVE: CASE EVENT DATE: 20181101
